FAERS Safety Report 17025559 (Version 1)
Quarter: 2019Q4

REPORT INFORMATION
  Report Type: Report from Study
  Country: US (occurrence: US)
  Receive Date: 20191113
  Receipt Date: 20191113
  Transmission Date: 20200122
  Serious: Yes (Other)
  Sender: FDA-Public Use
  Company Number: US-SA-2017SA145335

PATIENT
  Age: 19 Year
  Sex: Male

DRUGS (4)
  1. AGALSIDASE BETA [Suspect]
     Active Substance: AGALSIDASE BETA
     Indication: FABRY^S DISEASE
     Dosage: 35, Q1
     Route: 041
     Dates: start: 20170801
  2. BENADRYL [Concomitant]
     Active Substance: DIPHENHYDRAMINE HYDROCHLORIDE
     Indication: PREMEDICATION
     Dosage: UNK UNK,UNK
     Route: 065
  3. PARACETAMOL [Concomitant]
     Active Substance: ACETAMINOPHEN
     Indication: PREMEDICATION
     Dosage: UNK UNK,UNK
     Route: 065
  4. SOLU-MEDROL [Concomitant]
     Active Substance: METHYLPREDNISOLONE SODIUM SUCCINATE
     Indication: PREMEDICATION
     Dosage: UNK UNK,UNK
     Route: 065

REACTIONS (20)
  - Neuropathy peripheral [Recovering/Resolving]
  - Neuropathy peripheral [Recovering/Resolving]
  - Transient ischaemic attack [Not Recovered/Not Resolved]
  - Blood pressure abnormal [Recovered/Resolved]
  - Anxiety [Recovering/Resolving]
  - Headache [Recovered/Resolved]
  - Fatigue [Recovering/Resolving]
  - Heart rate increased [Recovered/Resolved]
  - Back pain [Recovered/Resolved]
  - Head discomfort [Recovering/Resolving]
  - Hypoaesthesia [Recovered/Resolved]
  - Paraesthesia [Recovered/Resolved]
  - Palpitations [Recovered/Resolved]
  - Hemiparaesthesia [Not Recovered/Not Resolved]
  - Chest pain [Not Recovered/Not Resolved]
  - Heart rate increased [Recovered/Resolved]
  - Cyst [Recovering/Resolving]
  - Dizziness [Not Recovered/Not Resolved]
  - Vitamin D decreased [Not Recovered/Not Resolved]
  - Paraesthesia oral [Recovered/Resolved]

NARRATIVE: CASE EVENT DATE: 201708
